FAERS Safety Report 23389186 (Version 1)
Quarter: 2024Q1

REPORT INFORMATION
  Report Type: Spontaneous
  Country: CA (occurrence: CA)
  Receive Date: 20240110
  Receipt Date: 20240110
  Transmission Date: 20240410
  Serious: Yes (Other)
  Sender: FDA-Public Use
  Company Number: CA-FreseniusKabi-FK202400472

PATIENT
  Age: 78 Year
  Sex: Male

DRUGS (15)
  1. FENTANYL [Suspect]
     Active Substance: FENTANYL\FENTANYL CITRATE
     Indication: Sedative therapy
     Dosage: FORM OF ADMIN.- NOT SPECIFIED?ROUTE OF ADMIN.- INTRAVENOUS (NOT OTHERWISE SPECIFIED) ( INT ) ?FREQUE
     Route: 042
  2. FENTANYL [Suspect]
     Active Substance: FENTANYL\FENTANYL CITRATE
     Indication: Endoscopic retrograde cholangiopancreatography
  3. MIDAZOLAM HYDROCHLORIDE [Suspect]
     Active Substance: MIDAZOLAM HYDROCHLORIDE
     Indication: Sedative therapy
     Dosage: ROUTE OF ADMIN.- INTRAVENOUS (NOT OTHERWISE SPECIFIED) ( INT ) ?FREQUENCY- ONCE
     Route: 042
  4. MIDAZOLAM HYDROCHLORIDE [Suspect]
     Active Substance: MIDAZOLAM HYDROCHLORIDE
     Indication: Endoscopic retrograde cholangiopancreatography
  5. VANCOMYCIN [Concomitant]
     Active Substance: VANCOMYCIN
     Indication: Product used for unknown indication
     Dosage: FORM OF ADMIN.- NOT SPECIFIED
  6. TOVIAZ [Concomitant]
     Active Substance: FESOTERODINE FUMARATE
     Indication: Product used for unknown indication
     Dosage: FORM OF ADMIN.- TABLET (EXTENDED-RELEASE)
  7. SENNOSIDES [Concomitant]
     Active Substance: SENNOSIDES
     Indication: Product used for unknown indication
     Dosage: FORM OF ADMIN.- NOT SPECIFIED
  8. PANTOPRAZOLE [Concomitant]
     Active Substance: PANTOPRAZOLE
     Indication: Product used for unknown indication
     Dosage: FORM OF ADMIN.- NOT SPECIFIED
  9. ONDANSETRON [Concomitant]
     Active Substance: ONDANSETRON
     Indication: Product used for unknown indication
     Dosage: FORM OF ADMIN.- NOT SPECIFIED
  10. MYRBETRIQ [Concomitant]
     Active Substance: MIRABEGRON
     Indication: Product used for unknown indication
     Dosage: FORM OF ADMIN.- TABLET (EXTENDED-RELEASE)
  11. MEROPENEM [Concomitant]
     Active Substance: MEROPENEM
     Indication: Product used for unknown indication
     Dosage: FORM OF ADMIN.- POWDER FOR SOLUTION INTRAVENOUS
  12. LORAZEPAM [Concomitant]
     Active Substance: LORAZEPAM
     Indication: Product used for unknown indication
     Dosage: FORM OF ADMIN.-TABLETS
  13. LIDOCAINE [Concomitant]
     Active Substance: LIDOCAINE
     Indication: Product used for unknown indication
     Dosage: FORM OF ADMIN.-SPRAY (NOT INHALATION)
  14. FUROSEMIDE [Concomitant]
     Active Substance: FUROSEMIDE
     Indication: Product used for unknown indication
     Dosage: FORM OF ADMIN.- NOT SPECIFIED
  15. ENOXAPARIN [Concomitant]
     Active Substance: ENOXAPARIN
     Indication: Product used for unknown indication
     Dosage: FORM OF ADMIN.- INJECTION

REACTIONS (2)
  - Oxygen saturation decreased [Unknown]
  - Reversal of sedation [Unknown]
